FAERS Safety Report 6721253-0 (Version None)
Quarter: 2010Q2

REPORT INFORMATION
  Report Type: 
  Country: None (occurrence: None)
  Receive Date: 20100510
  Receipt Date: 20100503
  Transmission Date: 20101027
  Serious: Yes (Life-Threatening, Hospitalization)
  Sender: FDA-Public Use
  Company Number: 20101443

PATIENT
  Age: 8 Year
  Sex: Female
  Weight: 9.5 kg

DRUGS (2)
  1. INCRELEX [Suspect]
     Indication: GROWTH HORMONE DEFICIENCY
     Dosage: 120 UG/KG (NOT REPORTED, 2 IN 1 D), SUBCUTANEOUS (53 UG/KG, 1 IN 1 D), SUBCUTANEOUS
     Route: 058
     Dates: start: 20070619, end: 20100326
  2. INCRELEX [Suspect]
     Indication: GROWTH HORMONE DEFICIENCY
     Dosage: 120 UG/KG (NOT REPORTED, 2 IN 1 D), SUBCUTANEOUS (53 UG/KG, 1 IN 1 D), SUBCUTANEOUS
     Route: 058
     Dates: start: 20100430

REACTIONS (5)
  - CARDIAC FAILURE [None]
  - CYSTIC FIBROSIS LUNG [None]
  - HAEMOLYTIC ANAEMIA [None]
  - HEPATIC ENZYME ABNORMAL [None]
  - INTERSTITIAL LUNG DISEASE [None]
